FAERS Safety Report 7920008-9 (Version None)
Quarter: 2011Q4

REPORT INFORMATION
  Report Type: 
  Country: None (occurrence: None)
  Receive Date: 20111117
  Receipt Date: 20111109
  Transmission Date: 20120403
  Serious: Yes (Death, Life-Threatening, Hospitalization)
  Sender: FDA-Public Use
  Company Number: JP-GENZYME-THYM-1002821

PATIENT
  Sex: Male
  Weight: 57 kg

DRUGS (18)
  1. URSODIOL [Concomitant]
     Indication: LYMPHOCYTIC INFILTRATION
     Dosage: UNK
     Route: 065
     Dates: start: 20110525, end: 20110610
  2. ACYCLOVIR [Concomitant]
     Indication: INFECTION PROPHYLAXIS
     Dosage: UNK
     Route: 065
     Dates: start: 20110525, end: 20110715
  3. FAMOTIDINE [Concomitant]
     Indication: GASTRITIS PROPHYLAXIS
     Dosage: UNK
     Route: 065
     Dates: start: 20110510, end: 20110610
  4. DALTEPARIN SODIUM [Concomitant]
     Indication: PROPHYLAXIS
     Dosage: UNK
     Route: 065
     Dates: start: 20110525, end: 20110610
  5. THYMOGLOBULIN [Suspect]
     Indication: PROPHYLAXIS AGAINST GRAFT VERSUS HOST DISEASE
     Dosage: 125 MG, QD
     Route: 042
     Dates: start: 20110530, end: 20110531
  6. REBAMIPIDE [Concomitant]
     Indication: GASTRITIS PROPHYLAXIS
     Dosage: UNK
     Route: 065
     Dates: start: 20110526, end: 20110610
  7. PLATELETS [Concomitant]
     Indication: PLATELET COUNT DECREASED
     Dosage: UNK
     Route: 065
     Dates: end: 20110709
  8. METHYLPREDNISOLONE SODIUM SUCCINATE [Concomitant]
     Indication: PROPHYLAXIS AGAINST GRAFT VERSUS HOST DISEASE
     Dosage: UNK
     Route: 065
     Dates: start: 20110306, end: 20110717
  9. SULPYRINE [Concomitant]
     Indication: PREMEDICATION
     Dosage: UNK
     Route: 065
     Dates: start: 20110617, end: 20110617
  10. TACROLIMUS [Concomitant]
     Indication: PROPHYLAXIS AGAINST GRAFT VERSUS HOST DISEASE
     Dosage: UNK
     Route: 065
     Dates: start: 20110531, end: 20110718
  11. THYMOGLOBULIN [Suspect]
     Dosage: 50 MG, QD
     Route: 042
     Dates: start: 20110617, end: 20110617
  12. FAMOTIDINE [Concomitant]
     Dosage: UNK
     Route: 065
     Dates: start: 20110620, end: 20110717
  13. MICAFUNGIN SODIUM [Concomitant]
     Indication: FUNGAL INFECTION
     Dosage: UNK
     Route: 065
     Dates: start: 20110526, end: 20110620
  14. METHYLPREDNISOLONE SODIUM SUCCINATE [Concomitant]
     Indication: PREMEDICATION
     Dosage: UNK
     Route: 065
     Dates: start: 20110530, end: 20110531
  15. RED BLOOD CELLS, CONCENTRATED [Concomitant]
     Indication: ANAEMIA
     Dosage: UNK
     Route: 065
     Dates: end: 20110717
  16. DEXCHLORPHENIRAMINE MALEATE [Concomitant]
     Indication: PREMEDICATION
     Dosage: UNK
     Route: 065
     Dates: start: 20110617, end: 20110617
  17. FLUCONAZOLE [Concomitant]
     Indication: ANTIFUNGAL PROPHYLAXIS
     Dosage: UNK
     Route: 065
     Dates: start: 20110621, end: 20110712
  18. OMEPRAZOLE [Concomitant]
     Indication: GASTRITIS PROPHYLAXIS
     Dosage: UNK
     Route: 065
     Dates: start: 20110610, end: 20110619

REACTIONS (19)
  - RENAL IMPAIRMENT [None]
  - STOMATITIS [None]
  - HYPOALBUMINAEMIA [None]
  - DIARRHOEA [None]
  - VENOOCCLUSIVE LIVER DISEASE [None]
  - PNEUMONIA STAPHYLOCOCCAL [None]
  - WHITE BLOOD CELL COUNT DECREASED [None]
  - NON-HODGKIN'S LYMPHOMA [None]
  - THROMBOTIC MICROANGIOPATHY [None]
  - BLOOD PRESSURE DECREASED [None]
  - FLUID RETENTION [None]
  - DERMATITIS EXFOLIATIVE [None]
  - PYREXIA [None]
  - COAGULOPATHY [None]
  - MONONEUROPATHY MULTIPLEX [None]
  - COUGH [None]
  - GASTROINTESTINAL HAEMORRHAGE [None]
  - INFECTION [None]
  - PLEURAL EFFUSION [None]
